FAERS Safety Report 4531644-4 (Version None)
Quarter: 2004Q4

REPORT INFORMATION
  Report Type: 
  Country: None (occurrence: None)
  Receive Date: 20041220
  Receipt Date: 20040302
  Transmission Date: 20050328
  Serious: Yes (Other)
  Sender: FDA-Public Use
  Company Number: PHFR2004GB01275

PATIENT
  Age: 48 Year
  Sex: Male

DRUGS (6)
  1. CARBAMAZEPINE [Concomitant]
     Dosage: 400MG/DAY
     Route: 048
     Dates: end: 20040210
  2. CHLORPROMAZINE [Concomitant]
     Dosage: 300MG/DAY
     Route: 048
     Dates: end: 20040226
  3. TRAZODONE HCL [Concomitant]
     Dosage: 200MG/DAY
     Route: 065
     Dates: end: 20040310
  4. CLOZARIL [Suspect]
     Indication: SCHIZOPHRENIA
     Dosage: 275MG/DAY
  5. CLOZARIL [Suspect]
     Dosage: 100MG MANE/200MG NOCTE
     Route: 048
     Dates: start: 20040211
  6. CLOZARIL [Suspect]
     Dosage: 400MG/DAY
     Route: 048
     Dates: start: 20040323

REACTIONS (26)
  - AGITATION [None]
  - ANXIETY [None]
  - BLOOD CHOLESTEROL INCREASED [None]
  - BLOOD GLUCOSE INCREASED [None]
  - BLOOD LACTATE DEHYDROGENASE DECREASED [None]
  - BLOOD TRIGLYCERIDES INCREASED [None]
  - BLOOD UREA INCREASED [None]
  - C-REACTIVE PROTEIN INCREASED [None]
  - CONFUSIONAL STATE [None]
  - DELIRIUM [None]
  - DRUG LEVEL INCREASED [None]
  - DYSPNOEA [None]
  - HAEMOGLOBIN DECREASED [None]
  - HALLUCINATION, VISUAL [None]
  - HYPERHIDROSIS [None]
  - INCONTINENCE [None]
  - INFLUENZA LIKE ILLNESS [None]
  - LOWER RESPIRATORY TRACT INFECTION [None]
  - MALAISE [None]
  - NIGHTMARE [None]
  - RED BLOOD CELL COUNT DECREASED [None]
  - RESTLESSNESS [None]
  - SALIVARY HYPERSECRETION [None]
  - TACHYCARDIA [None]
  - WEIGHT DECREASED [None]
  - WHITE BLOOD CELL COUNT INCREASED [None]
